FAERS Safety Report 4819067-1 (Version None)
Quarter: 2005Q4

REPORT INFORMATION
  Report Type: 
  Country: None (occurrence: None)
  Receive Date: 20051103
  Receipt Date: 20051024
  Transmission Date: 20060501
  Serious: Yes (Other)
  Sender: FDA-Public Use
  Company Number: US-AVENTIS-200518493US

PATIENT
  Age: 84 Year
  Sex: Female

DRUGS (12)
  1. LOVENOX [Suspect]
     Indication: THROMBOSIS PROPHYLAXIS
     Route: 058
     Dates: start: 20050801
  2. PREDNISONE [Suspect]
     Indication: TEMPORAL ARTERITIS
     Dosage: DOSE: UNK
     Route: 048
     Dates: start: 20050823
  3. PREDNISONE [Suspect]
     Dosage: DOSE: UNK
     Route: 048
     Dates: start: 20020101, end: 20050801
  4. SOLU-CORTEF [Suspect]
     Indication: TEMPORAL ARTERITIS
     Dosage: DOSE: UNK
     Route: 042
     Dates: start: 20050801, end: 20050901
  5. PAXIL [Suspect]
     Indication: DEPRESSION
     Route: 048
     Dates: start: 20050823
  6. ARANESP [Suspect]
     Indication: ANAEMIA
     Route: 058
     Dates: start: 20050801
  7. ATENOLOL [Concomitant]
  8. MEGACE [Concomitant]
  9. REGLAN [Concomitant]
  10. PREVACID [Concomitant]
  11. DIFLUCAN [Concomitant]
     Dosage: DOSE: UNK
  12. NPH INSULIN [Concomitant]
     Dosage: DOSE: UNK

REACTIONS (3)
  - DYSARTHRIA [None]
  - DYSPHAGIA [None]
  - GASTROINTESTINAL PERFORATION [None]
